FAERS Safety Report 6084167-8 (Version None)
Quarter: 2009Q1

REPORT INFORMATION
  Report Type: 
  Country: None (occurrence: None)
  Receive Date: 20090219
  Receipt Date: 20090210
  Transmission Date: 20090719
  Serious: Yes (Hospitalization)
  Sender: FDA-Public Use
  Company Number: US-TEVA-185192USA

PATIENT
  Sex: Female

DRUGS (7)
  1. BACLOFEN TABLETS USP, 10MG [Suspect]
     Indication: MUSCLE SPASMS
     Route: 048
  2. INTERFERON BETA-1A [Suspect]
     Indication: MULTIPLE SCLEROSIS
     Route: 058
     Dates: start: 20070517
  3. PREGABALIN [Suspect]
     Indication: FIBROMYALGIA
  4. DULOXETINE HYDROCHLORIDE [Suspect]
     Dates: start: 20070101
  5. VICODIN [Concomitant]
     Indication: PAIN
  6. ALPRAZOLAM [Concomitant]
     Indication: ANXIETY
  7. OBETROL [Concomitant]
     Indication: FATIGUE

REACTIONS (5)
  - AFFECT LABILITY [None]
  - DRUG TOXICITY [None]
  - INFECTION [None]
  - INTENTIONAL DRUG MISUSE [None]
  - MULTIPLE SCLEROSIS RELAPSE [None]
